FAERS Safety Report 9288744 (Version 1)
Quarter: 2013Q2

REPORT INFORMATION
  Report Type: Spontaneous
  Country: US (occurrence: None)
  Receive Date: 20130513
  Receipt Date: 20130513
  Transmission Date: 20140414
  Serious: Yes (Other)
  Sender: FDA-Public Use
  Company Number: None

PATIENT
  Age: 56 Year
  Sex: Female

DRUGS (1)
  1. LIVALO [Suspect]
     Route: 048

REACTIONS (5)
  - Amnesia [None]
  - Confusional state [None]
  - Feeling abnormal [None]
  - Depression [None]
  - Activities of daily living impaired [None]
